FAERS Safety Report 9676443 (Version 1)
Quarter: 2013Q4

REPORT INFORMATION
  Report Type: Spontaneous
  Country: US (occurrence: US)
  Receive Date: 20131107
  Receipt Date: 20131107
  Transmission Date: 20140711
  Serious: Yes (Life-Threatening, Hospitalization, Other)
  Sender: FDA-Public Use
  Company Number: CHPA2013US016809

PATIENT
  Age: 58 Year
  Sex: Female
  Weight: 86.17 kg

DRUGS (5)
  1. EXCEDRIN MIGRAINE [Suspect]
     Indication: MIGRAINE
     Dosage: 2 DF, QD
     Route: 048
     Dates: end: 20131005
  2. NAPRELAN [Suspect]
     Indication: TENDONITIS
     Dosage: 750 MG, QD
     Route: 048
     Dates: start: 20130822, end: 20130922
  3. NAPRELAN [Suspect]
     Indication: PAIN
  4. PROTONIX [Concomitant]
  5. NEXIUM//ESOMEPRAZOLE MAGNESIUM [Concomitant]

REACTIONS (3)
  - Gastric ulcer haemorrhage [Unknown]
  - Haematochezia [Unknown]
  - Vomiting [Unknown]
